FAERS Safety Report 9823593 (Version 3)
Quarter: 2016Q4

REPORT INFORMATION
  Report Type: Report from Study
  Country: None (occurrence: CA)
  Receive Date: 20140116
  Receipt Date: 20161214
  Transmission Date: 20170207
  Serious: Yes (Hospitalization)
  Sender: FDA-Public Use
  Company Number: CA-ABBVIE-14P-028-1188201-00

PATIENT
  Age: 82 Year
  Sex: Male
  Weight: 66.74 kg

DRUGS (2)
  1. CASODEX [Concomitant]
     Active Substance: BICALUTAMIDE
     Indication: PROSTATE CANCER
     Dates: start: 20121101
  2. LUPRON DEPOT [Suspect]
     Active Substance: LEUPROLIDE ACETATE
     Indication: PRODUCT USED FOR UNKNOWN INDICATION
     Route: 030
     Dates: start: 20121119

REACTIONS (9)
  - Hiatus hernia [Unknown]
  - Pollakiuria [Unknown]
  - Prostate cancer [Not Recovered/Not Resolved]
  - Renal cyst [Unknown]
  - Arthralgia [Recovering/Resolving]
  - Prostate cancer metastatic [Unknown]
  - Blood urine present [Unknown]
  - Haematuria [Recovering/Resolving]
  - Pelvic mass [Unknown]

NARRATIVE: CASE EVENT DATE: 20131226
